FAERS Safety Report 7921322-3 (Version None)
Quarter: 2011Q4

REPORT INFORMATION
  Report Type: 
  Country: None (occurrence: None)
  Receive Date: 20111117
  Receipt Date: 20111101
  Transmission Date: 20120403
  Serious: No
  Sender: FDA-Public Use
  Company Number: US-B.I. PHARMACEUTICALS,INC./RIDGEFIELD-2011-BP-25536BP

PATIENT
  Sex: Female

DRUGS (14)
  1. SERTRALINE HYDROCHLORIDE [Concomitant]
     Indication: DEPRESSION
  2. LOSARTAN POTASSIUM [Concomitant]
  3. GLYPIZIDE XL [Concomitant]
     Indication: DIABETES MELLITUS
  4. LIPITOR [Concomitant]
     Indication: BLOOD CHOLESTEROL
  5. POTASSIUM [Concomitant]
     Indication: SUPPLEMENTATION THERAPY
  6. CLONIDINE [Concomitant]
     Indication: HYPERTENSION
  7. VITAMIN E [Concomitant]
     Indication: SUPPLEMENTATION THERAPY
  8. PRADAXA [Suspect]
     Indication: ATRIAL FIBRILLATION
     Dates: start: 20110606
  9. METFORMIN HCL [Concomitant]
     Indication: DIABETES MELLITUS
  10. AMLODIPINE [Concomitant]
     Indication: CARDIAC DISORDER
  11. ASPIRIN [Concomitant]
     Indication: CARDIAC DISORDER
  12. FUROSEMIDE [Concomitant]
     Indication: DIURETIC THERAPY
  13. HYDROCLORITHIAZIDE [Concomitant]
     Indication: DIURETIC THERAPY
  14. METROPOLOL [Concomitant]
     Indication: HYPERTENSION

REACTIONS (1)
  - HAEMOGLOBIN DECREASED [None]
